FAERS Safety Report 25359095 (Version 1)
Quarter: 2025Q2

REPORT INFORMATION
  Report Type: Spontaneous
  Country: US (occurrence: US)
  Receive Date: 20250526
  Receipt Date: 20250526
  Transmission Date: 20250716
  Serious: Yes (Other)
  Sender: MALLINCKRODT
  Company Number: US-MALLINCKRODT-MNK202502947

PATIENT
  Age: 72 Year
  Sex: Male
  Weight: 77 kg

DRUGS (14)
  1. CORTICOTROPIN [Suspect]
     Active Substance: CORTICOTROPIN
     Indication: Product used for unknown indication
  2. RECORLEV [Suspect]
     Active Substance: LEVOKETOCONAZOLE
     Indication: Cushing^s syndrome
     Route: 048
     Dates: start: 20250314
  3. INSULIN NOS [Concomitant]
     Active Substance: INSULIN NOS
  4. HYDROXYCHLOROQUINE [Concomitant]
     Active Substance: HYDROXYCHLOROQUINE
  5. MYCOPHENOLIC ACID [Concomitant]
     Active Substance: MYCOPHENOLIC ACID
  6. OLMESARTAN [Concomitant]
     Active Substance: OLMESARTAN
  7. AMLODIPINE [Concomitant]
     Active Substance: AMLODIPINE BESYLATE
  8. METOPROLOL [Concomitant]
     Active Substance: METOPROLOL
  9. CHLOROTHIAZIDE [Concomitant]
     Active Substance: CHLOROTHIAZIDE
  10. OZEMPIC [Concomitant]
     Active Substance: SEMAGLUTIDE
  11. URSODIOL [Concomitant]
     Active Substance: URSODIOL
  12. TAMSULOSIN [Concomitant]
     Active Substance: TAMSULOSIN
  13. XANAX [Concomitant]
     Active Substance: ALPRAZOLAM
  14. AMBIEN [Concomitant]
     Active Substance: ZOLPIDEM TARTRATE

REACTIONS (5)
  - Cushing^s syndrome [Unknown]
  - Contusion [Unknown]
  - Diarrhoea [Unknown]
  - Fatigue [Unknown]
  - Insomnia [Unknown]

NARRATIVE: CASE EVENT DATE: 20250314
